FAERS Safety Report 10082073 (Version 1)
Quarter: 2014Q2

REPORT INFORMATION
  Report Type: Spontaneous
  Country: ES (occurrence: ES)
  Receive Date: 20140416
  Receipt Date: 20140416
  Transmission Date: 20141212
  Serious: Yes (Other)
  Sender: FDA-Public Use
  Company Number: ES-BRISTOL-MYERS SQUIBB COMPANY-20630240

PATIENT
  Age: 89 Year
  Sex: Male
  Weight: 72 kg

DRUGS (1)
  1. FORXIGA [Suspect]

REACTIONS (4)
  - Angioedema [Recovered/Resolved]
  - Localised oedema [Recovered/Resolved]
  - Decreased appetite [Unknown]
  - Malaise [Unknown]
